FAERS Safety Report 4296041-8 (Version None)
Quarter: 2004Q1

REPORT INFORMATION
  Report Type: 
  Country: None (occurrence: None)
  Receive Date: 20040212
  Receipt Date: 20031007
  Transmission Date: 20041129
  Serious: Yes (Other)
  Sender: FDA-Public Use
  Company Number: 200211-0904

PATIENT
  Sex: Female

DRUGS (2)
  1. BENADRYL ALLERGY/SINUS (DIPHENHYDRAMINE, PSEUDOEPHEDRINE) [Suspect]
     Indication: HYPERSENSITIVITY
     Dosage: 2-3 X DAILY, ORAL
     Route: 048
     Dates: start: 20021117, end: 20021101
  2. BENADRYL ALLERGY/SINUS (DIPHENHYDRAMINE, PSEUDOEPHEDRINE) [Suspect]
     Indication: NASOPHARYNGITIS
     Dosage: 2-3 X DAILY, ORAL
     Route: 048
     Dates: start: 20021117, end: 20021101

REACTIONS (3)
  - ABORTION SPONTANEOUS [None]
  - COMPLICATIONS OF MATERNAL EXPOSURE TO THERAPEUTIC DRUGS [None]
  - MATERNAL DRUGS AFFECTING FOETUS [None]
